FAERS Safety Report 5034010-0 (Version None)
Quarter: 2006Q2

REPORT INFORMATION
  Report Type: 
  Country: None (occurrence: None)
  Receive Date: 20060626
  Receipt Date: 20060614
  Transmission Date: 20061013
  Serious: Yes (Hospitalization, Other)
  Sender: FDA-Public Use
  Company Number: PHNR2006AU00834

PATIENT
  Age: 60 Year
  Sex: Male

DRUGS (3)
  1. TEGRETOL [Suspect]
     Indication: TRIGEMINAL NEURALGIA
     Route: 048
     Dates: start: 20050324, end: 20050430
  2. URSO FALK [Concomitant]
  3. RIFAMPICIN [Concomitant]

REACTIONS (8)
  - BIOPSY LIVER ABNORMAL [None]
  - BLOOD BILIRUBIN INCREASED [None]
  - CHOLESTASIS [None]
  - CHROMATURIA [None]
  - FAECES PALE [None]
  - JAUNDICE [None]
  - PRURITUS [None]
  - VANISHING BILE DUCT SYNDROME [None]
